FAERS Safety Report 6390923-9 (Version None)
Quarter: 2009Q4

REPORT INFORMATION
  Report Type: 
  Country: None (occurrence: None)
  Receive Date: 20091003
  Receipt Date: 20090921
  Transmission Date: 20100525
  Serious: Yes (Death, Hospitalization)
  Sender: FDA-Public Use
  Company Number: GXKR2009GB10487

PATIENT
  Age: 65 Year
  Sex: Female
  Weight: 90 kg

DRUGS (13)
  1. CIPROFLOXACIN [Suspect]
     Indication: URINARY TRACT INFECTION
     Dosage: ORAL
     Route: 048
     Dates: start: 20090625, end: 20090627
  2. ALIMEMAZINE (ALIMEMAZINE) [Concomitant]
  3. ARTHROTEC [Concomitant]
  4. ASPIRIN [Concomitant]
  5. CALCICHEW D3 (CALCIUM CARBONATE, COLECALCIFEROL) [Concomitant]
  6. CETIRIZINE HCL [Concomitant]
  7. CITALOPRAM HYDROBROMIDE [Concomitant]
  8. FOLIC ACID [Concomitant]
  9. HYDROXYCARBAMIDE (HYDFOXYCARBAMIDE) [Concomitant]
  10. METHOTREXATE [Concomitant]
  11. PREDNISOLONE [Concomitant]
  12. THIAMINE (THIAMINE) [Concomitant]
  13. LEVOTHYROXINE SODIUM [Concomitant]

REACTIONS (1)
  - TOXIC EPIDERMAL NECROLYSIS [None]
